FAERS Safety Report 24107375 (Version 1)
Quarter: 2024Q3

REPORT INFORMATION
  Report Type: Report from Study
  Country: CL (occurrence: None)
  Receive Date: 20240718
  Receipt Date: 20240718
  Transmission Date: 20241017
  Serious: Yes (Hospitalization, Other)
  Sender: ASTRAZENECA
  Company Number: 2020SE58317

PATIENT
  Sex: Male

DRUGS (2)
  1. BRILINTA [Suspect]
     Active Substance: TICAGRELOR
     Indication: Angioplasty
     Dosage: 90.0MG UNKNOWN
     Route: 048
  2. BRILINTA [Suspect]
     Active Substance: TICAGRELOR
     Indication: Vascular graft
     Dosage: 90.0MG UNKNOWN
     Route: 048

REACTIONS (7)
  - Drowning [Unknown]
  - Arterial occlusive disease [Unknown]
  - Myocardial infarction [Unknown]
  - Vascular stent thrombosis [Unknown]
  - Chest pain [Unknown]
  - Choking [Unknown]
  - Panic attack [Unknown]

NARRATIVE: CASE EVENT DATE: 20181230
